FAERS Safety Report 9613576 (Version 1)
Quarter: 2013Q4

REPORT INFORMATION
  Report Type: Spontaneous
  Country: US (occurrence: US)
  Receive Date: 20131010
  Receipt Date: 20131010
  Transmission Date: 20140711
  Serious: Yes (Hospitalization)
  Sender: FDA-Public Use
  Company Number: US-WATSON-2013-17464

PATIENT
  Age: 75 Year
  Sex: Male
  Weight: 88 kg

DRUGS (1)
  1. PROBENECID AND COLCHICINE [Suspect]
     Indication: GOUT
     Dosage: 500/0.5MG, ONE TABLET TWICE A DAY
     Route: 048
     Dates: start: 20130601

REACTIONS (8)
  - Blood uric acid increased [Not Recovered/Not Resolved]
  - Tenderness [Recovering/Resolving]
  - Gait disturbance [Recovering/Resolving]
  - Local swelling [Recovering/Resolving]
  - Joint swelling [Recovering/Resolving]
  - Pain in extremity [Recovering/Resolving]
  - Abasia [Recovering/Resolving]
  - Myalgia [Recovering/Resolving]
